FAERS Safety Report 14384101 (Version 4)
Quarter: 2018Q2

REPORT INFORMATION
  Report Type: Spontaneous
  Country: US (occurrence: US)
  Receive Date: 20180115
  Receipt Date: 20180402
  Transmission Date: 20180711
  Serious: No
  Sender: FDA-Public Use
  Company Number: US-PFIZER INC-2018014643

PATIENT
  Age: 43 Year
  Sex: Female

DRUGS (2)
  1. XELJANZ XR [Suspect]
     Active Substance: TOFACITINIB CITRATE
     Indication: RHEUMATOID ARTHRITIS
  2. XELJANZ XR [Suspect]
     Active Substance: TOFACITINIB CITRATE
     Indication: CHRONIC KIDNEY DISEASE
     Dosage: 11 MG, DAILY
     Route: 048
     Dates: start: 201705

REACTIONS (5)
  - Product use in unapproved indication [Unknown]
  - Skin fissures [Recovered/Resolved]
  - Erythema [Unknown]
  - Diarrhoea [Recovered/Resolved]
  - Drug dose omission [Unknown]

NARRATIVE: CASE EVENT DATE: 201705
